FAERS Safety Report 4635610-X (Version None)
Quarter: 2005Q2

REPORT INFORMATION
  Report Type: 
  Country: None (occurrence: None)
  Receive Date: 20050413
  Receipt Date: 20050401
  Transmission Date: 20051028
  Serious: Yes (Hospitalization, Other)
  Sender: FDA-Public Use
  Company Number: KII-2005-0015776

PATIENT
  Age: 25 Year
  Sex: Male

DRUGS (2)
  1. OXYCONTIN [Suspect]
     Indication: PAIN
  2. CARISOPRODOL [Suspect]
     Indication: PAIN

REACTIONS (8)
  - DEPRESSED LEVEL OF CONSCIOUSNESS [None]
  - DYSARTHRIA [None]
  - INCOHERENT [None]
  - MULTIPLE DRUG OVERDOSE [None]
  - RESPIRATORY DEPRESSION [None]
  - RESPIRATORY DISTRESS [None]
  - RHONCHI [None]
  - SINUS TACHYCARDIA [None]
